FAERS Safety Report 24839712 (Version 1)
Quarter: 2025Q1

REPORT INFORMATION
  Report Type: Spontaneous
  Country: CN (occurrence: CN)
  Receive Date: 20250114
  Receipt Date: 20250114
  Transmission Date: 20250409
  Serious: Yes (Disabling)
  Sender: ROCHE
  Company Number: CN-ROCHE-10000179238

PATIENT
  Age: 43 Year
  Sex: Female
  Weight: 57 kg

DRUGS (4)
  1. PERTUZUMAB [Suspect]
     Active Substance: PERTUZUMAB
     Indication: Breast cancer
     Route: 042
     Dates: start: 20241207
  2. INVESTIGATIONAL PRODUCT [Suspect]
     Active Substance: INVESTIGATIONAL PRODUCT
     Indication: Breast cancer
     Route: 042
     Dates: start: 20241207
  3. SODIUM CHLORIDE [Concomitant]
     Active Substance: SODIUM CHLORIDE
     Route: 042
  4. STERILE WATER [Concomitant]
     Active Substance: WATER
     Route: 042

REACTIONS (1)
  - Cardiotoxicity [Recovering/Resolving]

NARRATIVE: CASE EVENT DATE: 20241228
